FAERS Safety Report 20382319 (Version 3)
Quarter: 2022Q2

REPORT INFORMATION
  Report Type: Spontaneous
  Country: US (occurrence: US)
  Receive Date: 20220127
  Receipt Date: 20220401
  Transmission Date: 20220720
  Serious: Yes (Other)
  Sender: FDA-Public Use
  Company Number: US-PFIZER INC-202200092297

PATIENT
  Age: 66 Year
  Sex: Female

DRUGS (1)
  1. XELJANZ [Suspect]
     Active Substance: TOFACITINIB CITRATE
     Dosage: 5 MG

REACTIONS (8)
  - Cholecystectomy [Unknown]
  - Joint range of motion decreased [Unknown]
  - Pain [Unknown]
  - Foreign body in ear [Unknown]
  - Joint swelling [Unknown]
  - Pain in jaw [Unknown]
  - Swelling face [Unknown]
  - Oral discomfort [Unknown]
